FAERS Safety Report 9299068 (Version 3)
Quarter: 2014Q3

REPORT INFORMATION
  Report Type: Spontaneous
  Country: FR (occurrence: FR)
  Receive Date: 20130520
  Receipt Date: 20140829
  Transmission Date: 20150326
  Serious: Yes (Life-Threatening)
  Sender: FDA-Public Use
  Company Number: FR-PFIZER INC-2013151605

PATIENT
  Age: 71 Year
  Sex: Male

DRUGS (8)
  1. KREDEX [Concomitant]
     Active Substance: CARVEDILOL
     Dosage: 12.5 MG, 2X/DAY
     Route: 048
     Dates: start: 201212
  2. TAHOR [Suspect]
     Active Substance: ATORVASTATIN CALCIUM
     Indication: DYSLIPIDAEMIA
     Dosage: 20 MG, 1X/DAY
     Route: 048
     Dates: end: 20130416
  3. INEXIUM [Concomitant]
     Active Substance: ESOMEPRAZOLE
     Dosage: 40 MG, 1X/DAY
     Route: 048
  4. ORBENINE [Concomitant]
     Active Substance: CLOXACILLIN SODIUM
     Indication: DEVICE RELATED INFECTION
     Dosage: 1 G, 3X/DAY
     Route: 048
     Dates: start: 20121119, end: 20130421
  5. KARDEGIC [Concomitant]
     Active Substance: ASPIRIN LYSINE
     Dosage: 75 MG, 1X/DAY
     Route: 048
     Dates: end: 20130424
  6. LASILIX [Concomitant]
     Active Substance: FUROSEMIDE
     Dosage: 250 MG, 2X/DAY
     Route: 048
     Dates: start: 201212
  7. FUCIDINE [Interacting]
     Active Substance: FUSIDIC ACID
     Indication: DEVICE RELATED INFECTION
     Dosage: 500 MG, 3X/DAY
     Route: 048
     Dates: start: 201211, end: 20130417
  8. PLAVIX [Concomitant]
     Active Substance: CLOPIDOGREL BISULFATE
     Dosage: 75 MG, 1X/DAY
     Route: 048
     Dates: start: 201212

REACTIONS (3)
  - Drug interaction [Recovered/Resolved]
  - Rhabdomyolysis [Recovered/Resolved]
  - Quadriparesis [Recovered/Resolved with Sequelae]

NARRATIVE: CASE EVENT DATE: 20130412
